FAERS Safety Report 16910124 (Version 1)
Quarter: 2019Q4

REPORT INFORMATION
  Report Type: Spontaneous
  Country: US (occurrence: US)
  Receive Date: 20191011
  Receipt Date: 20191011
  Transmission Date: 20200122
  Serious: No
  Sender: FDA-Public Use
  Company Number: US-GLAXOSMITHKLINE-US2019AMR180561

PATIENT
  Sex: Female
  Weight: 102.4 kg

DRUGS (10)
  1. MELOXICAM TABLETS TABLET [Concomitant]
     Indication: PRODUCT USED FOR UNKNOWN INDICATION
     Dosage: UNK, STARTED 3 OR 4 YEARS AGO
  2. CYCLOBENZAPRINE TABLET [Concomitant]
     Indication: PRODUCT USED FOR UNKNOWN INDICATION
     Dosage: UNK, STARTED YEARS AGO
  3. WELLBUTRIN [Suspect]
     Active Substance: BUPROPION HYDROCHLORIDE
     Indication: BIPOLAR I DISORDER
  4. POTASSIUM CHLORIDE PROLONGED-RELEASE CAPSULE [Concomitant]
     Indication: PRODUCT USED FOR UNKNOWN INDICATION
     Dosage: UNK, STARTED YEARS AGO
  5. VITAMIN D3 [Concomitant]
     Active Substance: CHOLECALCIFEROL
     Indication: PRODUCT USED FOR UNKNOWN INDICATION
     Dosage: UNK, STARTED YEARS AGO
  6. WELLBUTRIN [Suspect]
     Active Substance: BUPROPION HYDROCHLORIDE
     Indication: BIPOLAR DISORDER
     Dosage: 150 MG, QD, STARTED 3-4 MONTHS AGO
     Dates: start: 2019
  7. ATORVASTATIN CALCIUM TABLET [Concomitant]
     Active Substance: ATORVASTATIN CALCIUM
     Indication: PRODUCT USED FOR UNKNOWN INDICATION
     Dosage: UNK, STARTED IN MAY OR JUN 2019.
     Dates: start: 2019
  8. LEVOTHYROXINE TABLET [Concomitant]
     Active Substance: LEVOTHYROXINE
     Indication: PRODUCT USED FOR UNKNOWN INDICATION
     Dosage: UNK, STARTED YEARS AGO
  9. ALLOPURINOL TABLET [Concomitant]
     Active Substance: ALLOPURINOL
     Indication: PRODUCT USED FOR UNKNOWN INDICATION
     Dosage: UNK, STARTED YEARS AGO
  10. WELLBUTRIN [Suspect]
     Active Substance: BUPROPION HYDROCHLORIDE
     Indication: SUICIDAL IDEATION

REACTIONS (1)
  - Therapeutic product effect incomplete [Unknown]
